FAERS Safety Report 14110676 (Version 1)
Quarter: 2017Q4

REPORT INFORMATION
  Report Type: Spontaneous
  Country: US (occurrence: None)
  Receive Date: 20171019
  Receipt Date: 20171019
  Transmission Date: 20180321
  Serious: Yes (Hospitalization)
  Sender: FDA-Public Use
  Company Number: None

PATIENT
  Age: 84 Year
  Sex: Female

DRUGS (9)
  1. ASA [Concomitant]
     Active Substance: ASPIRIN
  2. VERAPAM [Concomitant]
  3. ARANESP [Suspect]
     Active Substance: DARBEPOETIN ALFA
     Indication: ACUTE MYELOID LEUKAEMIA
     Route: 058
  4. LEVOTHYRX [Concomitant]
  5. TOPROL XL [Concomitant]
     Active Substance: METOPROLOL SUCCINATE
  6. ATORVAST [Concomitant]
  7. LOVAQ [Concomitant]
  8. ALLOPURIN [Concomitant]
  9. FLUCONAZ [Concomitant]

REACTIONS (3)
  - Asthenia [None]
  - Pneumonia fungal [None]
  - Dyspnoea [None]

NARRATIVE: CASE EVENT DATE: 20171011
